FAERS Safety Report 4284243-6 (Version None)
Quarter: 2004Q1

REPORT INFORMATION
  Report Type: 
  Country: None (occurrence: None)
  Receive Date: 20040203
  Receipt Date: 20040123
  Transmission Date: 20041129
  Serious: Yes (Hospitalization)
  Sender: FDA-Public Use
  Company Number: CA-ROCHE-357376

PATIENT
  Age: 53 Year
  Sex: Male
  Weight: 118 kg

DRUGS (8)
  1. PEG-INTERFERON ALFA 2A (RO 25-8310) [Suspect]
     Dosage: TAKEN WEEKLY
     Route: 058
     Dates: start: 20030724
  2. RIBAVIRIN [Suspect]
     Route: 048
     Dates: start: 20030724
  3. COZAAR [Concomitant]
  4. ALTACE [Concomitant]
  5. NORVASC [Concomitant]
  6. INDAPAMIDE [Concomitant]
  7. GLYBURIDE [Concomitant]
  8. ATENOLOL [Concomitant]

REACTIONS (2)
  - APPENDICITIS [None]
  - DIVERTICULITIS [None]
